FAERS Safety Report 8516718-5 (Version None)
Quarter: 2012Q3

REPORT INFORMATION
  Report Type: 
  Country: None (occurrence: None)
  Receive Date: 20120718
  Receipt Date: 20120710
  Transmission Date: 20120928
  Serious: Yes (Disabling, Other)
  Sender: FDA-Public Use
  Company Number: BR-SANOFI-AVENTIS-2012SA049370

PATIENT
  Sex: Female

DRUGS (1)
  1. LANTUS [Suspect]
     Route: 065
     Dates: start: 20090101

REACTIONS (3)
  - OSTEOPOROSIS [None]
  - SPINAL FRACTURE [None]
  - CONDITION AGGRAVATED [None]
